FAERS Safety Report 15585584 (Version 1)
Quarter: 2018Q4

REPORT INFORMATION
  Report Type: Spontaneous
  Country: FR (occurrence: FR)
  Receive Date: 20181105
  Receipt Date: 20181105
  Transmission Date: 20190205
  Serious: Yes (Death, Hospitalization)
  Sender: FDA-Public Use
  Company Number: FR-TEVA-2018-FR-970547

PATIENT
  Age: 83 Year
  Sex: Male
  Weight: 91 kg

DRUGS (9)
  1. XATRAL [Suspect]
     Active Substance: ALFUZOSIN
     Indication: BENIGN PROSTATIC HYPERPLASIA
     Route: 048
     Dates: start: 20180919
  2. PREVISCAN 20 MG, COMPRIM? S?CABLE [Suspect]
     Active Substance: FLUINDIONE
     Indication: ATRIAL FIBRILLATION
     Dosage: 5 MILLIGRAM DAILY; SCORED
     Route: 048
     Dates: end: 20180919
  3. AERIUS (DESLORATADINE) [Suspect]
     Active Substance: DESLORATADINE
     Indication: PRURITUS
     Dosage: 5 MILLIGRAM DAILY;
     Route: 048
     Dates: start: 20180905, end: 20181007
  4. JOSIR L.P. 0,4 MG, MICROGRANULES ? LIB?RATION PROLONG?E EN G?LULE [Suspect]
     Active Substance: TAMSULOSIN HYDROCHLORIDE
     Indication: BENIGN PROSTATIC HYPERPLASIA
     Dosage: .4 MILLIGRAM DAILY;
     Route: 048
     Dates: end: 20180909
  5. PERMIXON 160 MG, G?LULE [Suspect]
     Active Substance: HERBALS\SAW PALMETTO
     Indication: BENIGN PROSTATIC HYPERPLASIA
     Route: 048
     Dates: end: 20180919
  6. ALLOPURINOL. [Suspect]
     Active Substance: ALLOPURINOL
     Indication: GOUT
     Route: 048
     Dates: end: 20181003
  7. PRODINAN [Suspect]
     Active Substance: HERBALS\SAW PALMETTO
     Indication: BENIGN PROSTATIC HYPERPLASIA
     Route: 048
     Dates: end: 20180919
  8. CABOMETYX [Suspect]
     Active Substance: CABOZANTINIB S-MALATE
     Indication: RENAL CANCER METASTATIC
     Dosage: 60 MILLIGRAM DAILY;
     Route: 048
     Dates: end: 20181003
  9. WARFARINE SODIQUE [Suspect]
     Active Substance: WARFARIN SODIUM
     Indication: ATRIAL FIBRILLATION
     Route: 048
     Dates: start: 20180919

REACTIONS (6)
  - Hallucination [Recovered/Resolved]
  - Pruritus [Not Recovered/Not Resolved]
  - Eosinophilia [Not Recovered/Not Resolved]
  - Confusional state [Recovered/Resolved]
  - Purpura [Not Recovered/Not Resolved]
  - Oedema [Not Recovered/Not Resolved]

NARRATIVE: CASE EVENT DATE: 20180803
